FAERS Safety Report 10765366 (Version 1)
Quarter: 2015Q1

REPORT INFORMATION
  Report Type: Spontaneous
  Country: NO (occurrence: NO)
  Receive Date: 20150205
  Receipt Date: 20150205
  Transmission Date: 20150721
  Serious: Yes (Death)
  Sender: FDA-Public Use
  Company Number: NO-ASTRAZENECA-2015SE09391

PATIENT
  Age: 27 Year
  Sex: Male

DRUGS (6)
  1. QUETIAPINE [Suspect]
     Active Substance: QUETIAPINE
     Route: 048
  2. NITRAZEPAM [Interacting]
     Active Substance: NITRAZEPAM
     Route: 065
  3. ZOPICLONE [Interacting]
     Active Substance: ZOPICLONE
     Route: 065
  4. BUPRENORPHINE (NON AZ DRUG) [Interacting]
     Active Substance: BUPRENORPHINE
     Route: 065
  5. CLONAZEPAM. [Interacting]
     Active Substance: CLONAZEPAM
     Route: 065
  6. PREGABALIN. [Interacting]
     Active Substance: PREGABALIN
     Route: 065

REACTIONS (2)
  - Death [Fatal]
  - Drug interaction [Unknown]
